FAERS Safety Report 8447035-X (Version None)
Quarter: 2012Q2

REPORT INFORMATION
  Report Type: 
  Country: None (occurrence: None)
  Receive Date: 20120619
  Receipt Date: 20120611
  Transmission Date: 20120825
  Serious: Yes (Other)
  Sender: FDA-Public Use
  Company Number: US-BAYER-2012-050312

PATIENT
  Age: 30 Year
  Sex: Female
  Weight: 64.853 kg

DRUGS (1)
  1. MIRENA [Suspect]
     Indication: CONTRACEPTION
     Dosage: 20 MCG/24HR, CONT
     Route: 015
     Dates: start: 20061213, end: 20120416

REACTIONS (3)
  - UTERINE SPASM [None]
  - PROCEDURAL PAIN [None]
  - DEVICE DISLOCATION [None]
